FAERS Safety Report 7768752-0 (Version None)
Quarter: 2011Q3

REPORT INFORMATION
  Report Type: 
  Country: None (occurrence: None)
  Receive Date: 20110922
  Receipt Date: 20100921
  Transmission Date: 20111222
  Serious: No
  Sender: FDA-Public Use
  Company Number: US-ASTRAZENECA-2010SE41612

PATIENT
  Age: 31 Year
  Sex: Male
  Weight: 98.4 kg

DRUGS (4)
  1. SEROQUEL XR [Suspect]
     Indication: POST-TRAUMATIC STRESS DISORDER
     Route: 048
     Dates: start: 20100728, end: 20100801
  2. SEROQUEL XR [Suspect]
     Indication: MOOD ALTERED
     Route: 048
     Dates: start: 20100728, end: 20100801
  3. SEROQUEL XR [Suspect]
     Indication: DEPRESSION
     Route: 048
     Dates: start: 20100728, end: 20100801
  4. SEROQUEL XR [Suspect]
     Indication: ANGER
     Route: 048
     Dates: start: 20100728, end: 20100801

REACTIONS (5)
  - RASH [None]
  - PRURITUS GENERALISED [None]
  - URTICARIA [None]
  - OEDEMA PERIPHERAL [None]
  - AURICULAR SWELLING [None]
